FAERS Safety Report 14999502 (Version 1)
Quarter: 2018Q2

REPORT INFORMATION
  Report Type: Spontaneous
  Country: GB (occurrence: GB)
  Receive Date: 20180612
  Receipt Date: 20180612
  Transmission Date: 20180711
  Serious: Yes (Other)
  Sender: FDA-Public Use
  Company Number: GB-ACCORD-068005

PATIENT
  Age: 54 Year
  Sex: Female
  Weight: 78 kg

DRUGS (8)
  1. DOXAZOSIN [Concomitant]
     Active Substance: DOXAZOSIN\DOXAZOSIN MESYLATE
     Indication: HYPERTENSION
     Dates: start: 20171205
  2. AMLODIPINE [Suspect]
     Active Substance: AMLODIPINE BESYLATE
     Indication: PRODUCT USED FOR UNKNOWN INDICATION
     Dates: start: 20171123
  3. BENDROFLUMETHIAZIDE [Concomitant]
     Active Substance: BENDROFLUMETHIAZIDE
     Dosage: MORNING
     Dates: start: 20170201
  4. CANDESARTAN. [Concomitant]
     Active Substance: CANDESARTAN
     Dates: start: 20170201
  5. VENLAFAXINE/VENLAFAXINE HYDROCHLORIDE [Concomitant]
     Dates: start: 20170201
  6. NICOTINE. [Concomitant]
     Active Substance: NICOTINE
     Dates: start: 20171116, end: 20171130
  7. OMEPRAZOLE. [Concomitant]
     Active Substance: OMEPRAZOLE
     Dates: start: 20170201
  8. IBUPROFEN. [Concomitant]
     Active Substance: IBUPROFEN
     Dosage: APPLY
     Dates: start: 20171116

REACTIONS (2)
  - Gingival bleeding [Recovered/Resolved]
  - Gingivitis [Unknown]

NARRATIVE: CASE EVENT DATE: 20171205
